FAERS Safety Report 16550884 (Version 1)
Quarter: 2019Q3

REPORT INFORMATION
  Report Type: Spontaneous
  Country: US (occurrence: US)
  Receive Date: 20190710
  Receipt Date: 20190710
  Transmission Date: 20191004
  Serious: Yes (Death, Hospitalization)
  Sender: FDA-Public Use
  Company Number: US-HORIZON-KRY-0475-2019

PATIENT
  Age: 47 Year
  Sex: Male

DRUGS (8)
  1. METFORMIN [Concomitant]
     Active Substance: METFORMIN HYDROCHLORIDE
  2. COLCHICINE. [Concomitant]
     Active Substance: COLCHICINE
  3. TORSEMIDE. [Concomitant]
     Active Substance: TORSEMIDE
  4. KRYSTEXXA [Suspect]
     Active Substance: PEGLOTICASE
     Indication: PRODUCT USED FOR UNKNOWN INDICATION
     Dates: start: 20190515, end: 20190530
  5. XARELTO [Concomitant]
     Active Substance: RIVAROXABAN
  6. PERCOCET [Concomitant]
     Active Substance: ACETAMINOPHEN\OXYCODONE HYDROCHLORIDE
  7. LISINOPRIL. [Concomitant]
     Active Substance: LISINOPRIL
  8. METHADONE [Concomitant]
     Active Substance: METHADONE HYDROCHLORIDE

REACTIONS (4)
  - Dehydration [Fatal]
  - Malaise [Fatal]
  - Cardiac arrest [Fatal]
  - Asthenia [Fatal]

NARRATIVE: CASE EVENT DATE: 201906
